FAERS Safety Report 10548992 (Version 1)
Quarter: 2014Q4

REPORT INFORMATION
  Report Type: Spontaneous
  Country: US (occurrence: None)
  Receive Date: 20141027
  Receipt Date: 20141027
  Transmission Date: 20150529
  Serious: Yes (Life-Threatening)
  Sender: FDA-Public Use
  Company Number: None

PATIENT
  Age: 78 Year
  Sex: Male
  Weight: 114.7 kg

DRUGS (3)
  1. ENOXAPARIN [Suspect]
     Active Substance: ENOXAPARIN
     Indication: DEEP VEIN THROMBOSIS
     Dosage: 100 MG  EVERY DAY  SQ
     Route: 058
     Dates: start: 20131212, end: 20131224
  2. ENOXAPARIN [Suspect]
     Active Substance: ENOXAPARIN
     Indication: PROPHYLAXIS
     Dosage: 100 MG  EVERY DAY  SQ
     Route: 058
     Dates: start: 20131212, end: 20131224
  3. ENOXAPARIN [Suspect]
     Active Substance: ENOXAPARIN
     Indication: VASCULAR OPERATION
     Dosage: 100 MG  EVERY DAY  SQ
     Route: 058
     Dates: start: 20131212, end: 20131224

REACTIONS (1)
  - Retroperitoneal haemorrhage [None]

NARRATIVE: CASE EVENT DATE: 20131224
